FAERS Safety Report 12555590 (Version 1)
Quarter: 2016Q3

REPORT INFORMATION
  Report Type: Spontaneous
  Country: US (occurrence: None)
  Receive Date: 20160713
  Receipt Date: 20160713
  Transmission Date: 20161109
  Serious: Yes (Life-Threatening, Hospitalization)
  Sender: FDA-Public Use
  Company Number: None

PATIENT
  Age: 36 Year
  Sex: Female
  Weight: 63.5 kg

DRUGS (4)
  1. ENBREL [Suspect]
     Active Substance: ETANERCEPT
     Indication: PSORIATIC ARTHROPATHY
     Dates: start: 20151202, end: 20160414
  2. ADDERALL [Concomitant]
     Active Substance: AMPHETAMINE ASPARTATE\AMPHETAMINE SULFATE\DEXTROAMPHETAMINE SACCHARATE\DEXTROAMPHETAMINE SULFATE
  3. RITALIN [Concomitant]
     Active Substance: METHYLPHENIDATE HYDROCHLORIDE
  4. SERTRALINE [Concomitant]
     Active Substance: SERTRALINE HYDROCHLORIDE

REACTIONS (18)
  - Chest pain [None]
  - Lethargy [None]
  - Jaundice [None]
  - Night sweats [None]
  - Chronic hepatitis [None]
  - Therapy cessation [None]
  - Abdominal distension [None]
  - Faeces pale [None]
  - Pruritus [None]
  - Cholangitis [None]
  - Autoimmune hepatitis [None]
  - Hypersomnia [None]
  - Fatigue [None]
  - Decreased appetite [None]
  - Paraesthesia [None]
  - Weight increased [None]
  - Dyspnoea [None]
  - Hepatitis infectious [None]

NARRATIVE: CASE EVENT DATE: 20160410
